FAERS Safety Report 9963992 (Version 4)
Quarter: 2014Q3

REPORT INFORMATION
  Report Type: Spontaneous
  Country: US (occurrence: US)
  Receive Date: 20140305
  Receipt Date: 20140910
  Transmission Date: 20150326
  Serious: Yes (Hospitalization, Other)
  Sender: FDA-Public Use
  Company Number: PHHY2014US026426

PATIENT
  Sex: Female

DRUGS (19)
  1. BACLOFEN. [Suspect]
     Active Substance: BACLOFEN
     Dosage: 20 MG, EVERY 6 HOURS, PRN
  2. CARBAMAZEPINE. [Suspect]
     Active Substance: CARBAMAZEPINE
     Dosage: 1 DF, BID
     Route: 048
  3. BUPIVACAINE [Suspect]
     Active Substance: BUPIVACAINE
     Indication: MUSCLE SPASTICITY
     Dosage: 26.451 MG (40 MG PER ML ), PER DAY
  4. MULTI-VIT [Suspect]
     Active Substance: VITAMINS
     Dosage: 1 DF, DAILY
  5. BACLOFEN INTRATHECAL [Suspect]
     Active Substance: BACLOFEN
     Dosage: 315.2 UG, PER DAY
     Route: 037
  6. OXYBUTYNIN [Suspect]
     Active Substance: OXYBUTYNIN
     Dosage: 5 MG, TID
     Route: 048
  7. LASIX [Suspect]
     Active Substance: FUROSEMIDE
     Dosage: 40 MG, PRN
     Route: 048
  8. ACETYLSALICYLIC ACID [Suspect]
     Active Substance: ASPIRIN
     Dosage: 81 MG, DAILY
     Route: 048
  9. TRAMADOL HYDROCHLORIDE TABLETS [Suspect]
     Active Substance: TRAMADOL HYDROCHLORIDE
     Indication: PAIN
     Dosage: 50 MG, PRN
     Route: 048
  10. POTASSIUM CHLORIDE. [Suspect]
     Active Substance: POTASSIUM CHLORIDE
     Dosage: 0.5 DF, PER DAY
     Route: 048
  11. ARTIFICIAL TEARS [Suspect]
     Active Substance: GLYCERIN\HYPROMELLOSES\POLYETHYLENE GLYCOL 400
     Dosage: UNK
  12. FERROUS SULFATE [Suspect]
     Active Substance: FERROUS SULFATE\FERROUS SULFATE, DRIED
     Dosage: 65 MG, BID
  13. BACLOFEN INTRATHECAL [Suspect]
     Active Substance: BACLOFEN
     Indication: MUSCLE SPASTICITY
     Dosage: 315.43 UG, PER DAY
     Route: 037
  14. BACLOFEN. [Suspect]
     Active Substance: BACLOFEN
     Indication: MUSCLE SPASMS
     Dosage: PRN
     Route: 048
  15. RESTASIS [Suspect]
     Active Substance: CYCLOSPORINE
     Dosage: 1 DRP, BID, BOTH EYES
     Route: 047
  16. BUPIVACAINE [Suspect]
     Active Substance: BUPIVACAINE
     Dosage: UNK (35 MG PER ML )
  17. FLONASE [Suspect]
     Active Substance: FLUTICASONE PROPIONATE
     Dosage: DAILY, AS NEEDED
     Route: 045
  18. COLACE [Suspect]
     Active Substance: DOCUSATE SODIUM
     Dosage: 2 DF, BID
     Route: 048
  19. SALINE [Suspect]
     Active Substance: SODIUM CHLORIDE
     Dosage: UNK

REACTIONS (5)
  - Muscle spasms [Recovered/Resolved]
  - Urosepsis [Recovered/Resolved]
  - Muscle spasticity [Recovered/Resolved]
  - Muscle tightness [Recovered/Resolved]
  - Pain [Recovered/Resolved]
